FAERS Safety Report 5004787-9 (Version None)
Quarter: 2006Q2

REPORT INFORMATION
  Report Type: 
  Country: None (occurrence: None)
  Receive Date: 20060517
  Receipt Date: 20060510
  Transmission Date: 20061013
  Serious: Yes (Hospitalization)
  Sender: FDA-Public Use
  Company Number: JP-MERCK-0605USA02102

PATIENT
  Sex: Male

DRUGS (3)
  1. SINGULAIR [Suspect]
     Indication: ASTHMA
     Route: 048
  2. AVISHOT [Concomitant]
     Route: 048
  3. ADALAT [Concomitant]
     Route: 065

REACTIONS (1)
  - HEPATITIS FULMINANT [None]
